FAERS Safety Report 4476738-7 (Version None)
Quarter: 2004Q4

REPORT INFORMATION
  Report Type: 
  Country: None (occurrence: None)
  Receive Date: 20041013
  Receipt Date: 20040916
  Transmission Date: 20050328
  Serious: Yes (Other)
  Sender: FDA-Public Use
  Company Number: USA040258152

PATIENT
  Age: 50 Year
  Sex: Male
  Weight: 109 kg

DRUGS (2)
  1. ZYPREXA [Suspect]
     Indication: BIPOLAR DISORDER
     Dosage: 15 MG DAY
     Dates: start: 20030101, end: 20040701
  2. ZOLOFT [Concomitant]

REACTIONS (6)
  - DRUG WITHDRAWAL SYNDROME [None]
  - EAR CONGESTION [None]
  - GLUCOSE TOLERANCE IMPAIRED [None]
  - HEPATOCELLULAR DAMAGE [None]
  - SOMNOLENCE [None]
  - WEIGHT INCREASED [None]
